FAERS Safety Report 16608587 (Version 1)
Quarter: 2019Q3

REPORT INFORMATION
  Report Type: Spontaneous
  Country: DE (occurrence: DE)
  Receive Date: 20190722
  Receipt Date: 20190722
  Transmission Date: 20191004
  Serious: Yes (Life-Threatening, Hospitalization, Other)
  Sender: FDA-Public Use
  Company Number: DE-TEVA-2019-DE-1080250

PATIENT
  Age: 39 Year
  Sex: Female

DRUGS (4)
  1. TRAMADOL. [Suspect]
     Active Substance: TRAMADOL
     Dosage: NK MG, UP TO 4X DAILY IF NEEDED
  2. BERODUAL [Concomitant]
     Active Substance: FENOTEROL HYDROBROMIDE\IPRATROPIUM BROMIDE
     Dosage: NK MG, REQUIREMENT 1-2 STROKE, DOSING AEROSOL
     Route: 055
  3. ZONEGRAN [Concomitant]
     Active Substance: ZONISAMIDE
     Dosage: 200 MG, 1-1-1-0
  4. VALPROAT 300 MG/ML [Suspect]
     Active Substance: VALPROATE SODIUM
     Dosage: 2.5 ML, 1-0-1-0, JUICE

REACTIONS (2)
  - Therapeutic drug monitoring analysis not performed [Unknown]
  - Seizure [Unknown]

NARRATIVE: CASE EVENT DATE: 20171206
